FAERS Safety Report 16165191 (Version 3)
Quarter: 2019Q2

REPORT INFORMATION
  Report Type: Report from Study
  Country: US (occurrence: US)
  Receive Date: 20190405
  Receipt Date: 20190613
  Transmission Date: 20190711
  Serious: Yes (Hospitalization, Other)
  Sender: FDA-Public Use
  Company Number: US-ACTELION-A-US2019-188672

PATIENT
  Sex: Female
  Weight: 76.19 kg

DRUGS (4)
  1. ONDANSETRON [Concomitant]
     Active Substance: ONDANSETRON
  2. VELETRI [Suspect]
     Active Substance: EPOPROSTENOL
     Indication: PULMONARY HYPERTENSION
     Dosage: 20 NG/KG, PER MIN
     Route: 042
  3. LETAIRIS [Concomitant]
     Active Substance: AMBRISENTAN
  4. VELETRI [Suspect]
     Active Substance: EPOPROSTENOL
     Dosage: 22 NG/KG, PER MIN
     Route: 042

REACTIONS (11)
  - Pneumonia [Unknown]
  - Catheter site infection [Unknown]
  - Fall [Unknown]
  - Catheter management [Unknown]
  - Systemic lupus erythematosus [Unknown]
  - Chronic kidney disease [Unknown]
  - Nausea [Unknown]
  - Sjogren^s syndrome [Unknown]
  - Fluid retention [Unknown]
  - Head injury [Unknown]
  - Swelling [Unknown]
